FAERS Safety Report 15009783 (Version 1)
Quarter: 2018Q2

REPORT INFORMATION
  Report Type: Spontaneous
  Country: US (occurrence: US)
  Receive Date: 20180521
  Receipt Date: 20180521
  Transmission Date: 20180711
  Serious: Yes (Hospitalization)
  Sender: FDA-Public Use
  Company Number: None

PATIENT
  Age: 57 Year
  Sex: Female

DRUGS (4)
  1. SULFAMETHOXAZOLE/TRIMETHOPRIM [Suspect]
     Active Substance: SULFAMETHOXAZOLE\TRIMETHOPRIM
     Indication: PROPHYLAXIS
     Dosage: OTHER DOSE:800/160MG;?
     Route: 048
     Dates: start: 20170201, end: 20171201
  2. SULFAMETHOXAZOLE/TRIMETHOPRIM [Suspect]
     Active Substance: SULFAMETHOXAZOLE\TRIMETHOPRIM
     Indication: PNEUMOCYSTIS JIROVECII PNEUMONIA
     Dosage: OTHER DOSE:800/160MG;?
     Route: 048
     Dates: start: 20170201, end: 20171201
  3. LEVOTHYROXINE. [Concomitant]
     Active Substance: LEVOTHYROXINE
  4. IBUPROFEN. [Concomitant]
     Active Substance: IBUPROFEN

REACTIONS (6)
  - Herpes simplex [None]
  - Stevens-Johnson syndrome [None]
  - Stomatitis [None]
  - Dysphagia [None]
  - Candida infection [None]
  - Oesophagitis [None]

NARRATIVE: CASE EVENT DATE: 20171201
